FAERS Safety Report 13250661 (Version 1)
Quarter: 2017Q1

REPORT INFORMATION
  Report Type: Report from Study
  Country: US (occurrence: US)
  Receive Date: 20170219
  Receipt Date: 20170219
  Transmission Date: 20170428
  Serious: No
  Sender: FDA-Public Use
  Company Number: US-AMGEN-USASL2017022964

PATIENT
  Age: 4 Year
  Sex: Female

DRUGS (2)
  1. LIDOCAINE W/PRILOCAINE [Concomitant]
     Dosage: UNK
  2. ENBREL [Suspect]
     Active Substance: ETANERCEPT
     Indication: JUVENILE IDIOPATHIC ARTHRITIS
     Dosage: 7 ML, QWK
     Route: 065

REACTIONS (4)
  - Injection site erythema [Unknown]
  - Injection site pruritus [Unknown]
  - Injection site rash [Unknown]
  - Wrong technique in product usage process [Unknown]
